FAERS Safety Report 9286968 (Version 1)
Quarter: 2013Q2

REPORT INFORMATION
  Report Type: Spontaneous
  Country: US (occurrence: None)
  Receive Date: 20130508
  Receipt Date: 20130508
  Transmission Date: 20140414
  Serious: Yes (Other)
  Sender: FDA-Public Use
  Company Number: 2013HINLIT0088

PATIENT
  Age: 54 Year
  Sex: Male

DRUGS (1)
  1. TENOFOVIR [Suspect]
     Indication: ANTIRETROVIRAL THERAPY

REACTIONS (7)
  - Fanconi syndrome [None]
  - Nephropathy toxic [None]
  - Fall [None]
  - Pelvic fracture [None]
  - Lower limb fracture [None]
  - Scapula fracture [None]
  - Rib fracture [None]
